FAERS Safety Report 24259523 (Version 1)
Quarter: 2024Q3

REPORT INFORMATION
  Report Type: Spontaneous
  Country: US (occurrence: None)
  Receive Date: 20240827
  Receipt Date: 20240827
  Transmission Date: 20241016
  Serious: Yes (Disabling, Other)
  Sender: Public
  Company Number: None

PATIENT
  Age: 46 Year
  Sex: Male
  Weight: 79.65 kg

DRUGS (1)
  1. EPCLUSA [Suspect]
     Active Substance: SOFOSBUVIR\VELPATASVIR
     Indication: Hepatitis C
     Dosage: 82 TABLETS ORAL
     Route: 048
     Dates: start: 202402, end: 20240522

REACTIONS (9)
  - Temperature regulation disorder [None]
  - Gastrointestinal disorder [None]
  - Nausea [None]
  - Burning sensation [None]
  - Pain in extremity [None]
  - Asthenia [None]
  - Bedridden [None]
  - Vomiting [None]
  - Pain [None]

NARRATIVE: CASE EVENT DATE: 20240221
